FAERS Safety Report 24453579 (Version 2)
Quarter: 2024Q4

REPORT INFORMATION
  Report Type: Report from Study
  Country: CA (occurrence: CA)
  Receive Date: 20241017
  Receipt Date: 20241018
  Transmission Date: 20250115
  Serious: No
  Sender: ROCHE
  Company Number: CA-ROCHE-3124389

PATIENT
  Age: 66 Year
  Sex: Female
  Weight: 66.7 kg

DRUGS (7)
  1. RITUXAN [Suspect]
     Active Substance: RITUXIMAB
     Indication: Rheumatoid arthritis
     Route: 042
     Dates: start: 20110415, end: 20160323
  2. RITUXAN [Suspect]
     Active Substance: RITUXIMAB
     Dosage: DAY 1 ONLY
     Route: 042
     Dates: start: 20170405
  3. RITUXAN [Suspect]
     Active Substance: RITUXIMAB
     Route: 042
  4. BENADRYL [Concomitant]
     Active Substance: DIPHENHYDRAMINE HYDROCHLORIDE
     Indication: Premedication
     Route: 048
     Dates: start: 20110415
  5. PREDNISONE [Concomitant]
     Active Substance: PREDNISONE
  6. SOLU-MEDROL [Concomitant]
     Active Substance: METHYLPREDNISOLONE SODIUM SUCCINATE
     Indication: Premedication
     Route: 042
     Dates: start: 20110415
  7. TYLENOL [Concomitant]
     Active Substance: ACETAMINOPHEN
     Indication: Premedication
     Route: 048
     Dates: start: 20110415

REACTIONS (3)
  - Blood pressure systolic increased [Unknown]
  - Blood pressure diastolic abnormal [Unknown]
  - Oxygen saturation decreased [Unknown]

NARRATIVE: CASE EVENT DATE: 20220621
